FAERS Safety Report 5190923-0 (Version None)
Quarter: 2006Q4

REPORT INFORMATION
  Report Type: 
  Country: None (occurrence: None)
  Receive Date: 20061222
  Receipt Date: 20060710
  Transmission Date: 20070319
  Serious: Yes (Other)
  Sender: FDA-Public Use
  Company Number: FR-ABBOTT-06P-056-0337924-00

PATIENT
  Sex: Female
  Weight: 3070 kg

DRUGS (1)
  1. VERAPAMIL [Suspect]
     Indication: DRUG EXPOSURE DURING PREGNANCY

REACTIONS (1)
  - FOETAL DISTRESS SYNDROME [None]
